FAERS Safety Report 9229847 (Version 1)
Quarter: 2013Q2

REPORT INFORMATION
  Report Type: Spontaneous
  Country: US (occurrence: None)
  Receive Date: 20130411
  Receipt Date: 20130411
  Transmission Date: 20140414
  Serious: Yes (Hospitalization)
  Sender: FDA-Public Use
  Company Number: None

PATIENT
  Age: 64 Year
  Sex: Female
  Weight: 49.35 kg

DRUGS (15)
  1. SORAFENIB 600MG [Suspect]
     Indication: PANCREATIC CARCINOMA
     Dosage: SERAFENIDE
     Dates: start: 20130131, end: 20130327
  2. HYDROXYCHLOROQUINE 200MG [Suspect]
     Indication: PANCREATIC CARCINOMA
     Dosage: HYDROXYCHLOROQUINE
     Dates: start: 20130228, end: 20130327
  3. FENTANYL [Concomitant]
  4. DRONABINOL [Concomitant]
  5. BENADRYL [Concomitant]
  6. OMEPRAZOLE [Concomitant]
  7. WELLBUTRIN [Concomitant]
  8. LORAZEPAM [Concomitant]
  9. DOCUSATE SODIUM\SENNOSIDES [Concomitant]
  10. MIRALAX [Concomitant]
  11. MULTIVITAMIN [Concomitant]
  12. ONDANSETRON [Concomitant]
  13. PROCHLORPERAZINE [Concomitant]
  14. OXYCODONE [Concomitant]
  15. METOCLOPRAMIDE [Concomitant]

REACTIONS (1)
  - Cerebrovascular accident [None]
